FAERS Safety Report 25832718 (Version 3)
Quarter: 2025Q4

REPORT INFORMATION
  Report Type: Spontaneous
  Country: US (occurrence: US)
  Receive Date: 20250922
  Receipt Date: 20251001
  Transmission Date: 20260118
  Serious: No
  Sender: AMGEN
  Company Number: US-AMGEN-USASP2025188523

PATIENT
  Sex: Female

DRUGS (2)
  1. EVENITY [Suspect]
     Active Substance: ROMOSOZUMAB-AQQG
     Indication: Product used for unknown indication
     Dosage: 210 MILLIGRAM, QMO
     Route: 058
     Dates: start: 202501
  2. ADVIL [Concomitant]
     Active Substance: IBUPROFEN
     Dosage: UNK, UPTO 8 A DAY

REACTIONS (14)
  - Arthralgia [Not Recovered/Not Resolved]
  - Tendonitis [Not Recovered/Not Resolved]
  - Apathy [Unknown]
  - Injection site pain [Unknown]
  - Dysstasia [Unknown]
  - Gait inability [Unknown]
  - Nausea [Unknown]
  - Neck pain [Unknown]
  - Weight increased [Unknown]
  - Injection site bruising [Unknown]
  - Lack of administration site rotation [Unknown]
  - Injection site swelling [Unknown]
  - Muscle atrophy [Unknown]
  - Fibula fracture [Unknown]

NARRATIVE: CASE EVENT DATE: 20250101
